FAERS Safety Report 6927393-5 (Version None)
Quarter: 2010Q3

REPORT INFORMATION
  Report Type: 
  Country: None (occurrence: None)
  Receive Date: 20100817
  Receipt Date: 20100810
  Transmission Date: 20110219
  Serious: No
  Sender: FDA-Public Use
  Company Number: 2009BI008756

PATIENT
  Age: 51 Year
  Sex: Female

DRUGS (1)
  1. TYSABRI [Suspect]
     Indication: MULTIPLE SCLEROSIS
     Route: 042
     Dates: start: 20090123, end: 20090623

REACTIONS (3)
  - ARTHRALGIA [None]
  - MULTIPLE SCLEROSIS [None]
  - PAIN IN EXTREMITY [None]
